FAERS Safety Report 4984446-9 (Version None)
Quarter: 2006Q2

REPORT INFORMATION
  Report Type: 
  Country: None (occurrence: None)
  Receive Date: 20060427
  Receipt Date: 20051019
  Transmission Date: 20061013
  Serious: Yes (Other)
  Sender: FDA-Public Use
  Company Number: JP-JPN-A20052521

PATIENT
  Age: 56 Year
  Sex: Female

DRUGS (4)
  1. PAXIL [Suspect]
     Indication: BIPOLAR I DISORDER
     Route: 048
     Dates: end: 20060408
  2. ZYPREXA [Concomitant]
     Dosage: 7.5MG PER DAY
     Route: 048
  3. LIMAS [Concomitant]
     Route: 048
  4. PROTHIADEN [Concomitant]
     Dosage: 150MG PER DAY
     Route: 048

REACTIONS (8)
  - ASTHENIA [None]
  - DELIRIUM [None]
  - DEPRESSED LEVEL OF CONSCIOUSNESS [None]
  - MYOCLONUS [None]
  - PYREXIA [None]
  - ROAD TRAFFIC ACCIDENT [None]
  - SEROTONIN SYNDROME [None]
  - TREMOR [None]
